FAERS Safety Report 6030098-9 (Version None)
Quarter: 2009Q1

REPORT INFORMATION
  Report Type: 
  Country: None (occurrence: None)
  Receive Date: 20090107
  Receipt Date: 20080917
  Transmission Date: 20090719
  Serious: No
  Sender: FDA-Public Use
  Company Number: US-BAYER-200813809BCC

PATIENT
  Age: 82 Year
  Sex: Female
  Weight: 79 kg

DRUGS (1)
  1. ALEVE (CAPLET) [Suspect]
     Indication: ANALGESIA
     Dosage: UNIT DOSE: 220 MG
     Dates: start: 20080301

REACTIONS (3)
  - ABDOMINAL DISCOMFORT [None]
  - PAIN [None]
  - VOMITING [None]
